FAERS Safety Report 6849544-3 (Version None)
Quarter: 2010Q3

REPORT INFORMATION
  Report Type: 
  Country: None (occurrence: None)
  Receive Date: 20100716
  Receipt Date: 20070928
  Transmission Date: 20110219
  Serious: No
  Sender: FDA-Public Use
  Company Number: US-PFIZER INC-2007083320

PATIENT
  Sex: Female
  Weight: 44.9 kg

DRUGS (7)
  1. CHANTIX [Suspect]
     Indication: SMOKING CESSATION THERAPY
     Route: 048
     Dates: start: 20070903, end: 20070928
  2. FIORICET [Concomitant]
  3. PRILOSEC [Concomitant]
  4. MIACALCIN [Concomitant]
     Route: 045
  5. MEGACE [Concomitant]
  6. BACLOFEN [Concomitant]
  7. CALCIUM [Concomitant]

REACTIONS (1)
  - RAYNAUD'S PHENOMENON [None]
